FAERS Safety Report 25205104 (Version 1)
Quarter: 2025Q2

REPORT INFORMATION
  Report Type: Spontaneous
  Country: CN (occurrence: CN)
  Receive Date: 20250416
  Receipt Date: 20250416
  Transmission Date: 20250716
  Serious: Yes (Other)
  Sender: BAXTER
  Company Number: None

PATIENT
  Age: 55 Year
  Sex: Female
  Weight: 65 kg

DRUGS (2)
  1. CYCLOPHOSPHAMIDE [Suspect]
     Active Substance: CYCLOPHOSPHAMIDE
     Indication: Breast cancer female
     Dosage: 1 G, QD DISSOLVED IN 0.9% SODIUM CHLORIDE
     Route: 041
     Dates: start: 20250401, end: 20250401
  2. SODIUM CHLORIDE [Suspect]
     Active Substance: SODIUM CHLORIDE
     Indication: Medication dilution
     Dosage: 50 ML, QD VIA INTRAVENOUS INFUSION WITH CYCLOPHOSPHAMIDE
     Route: 041
     Dates: start: 20250401, end: 20250401

REACTIONS (5)
  - Dysphagia [Recovering/Resolving]
  - Decreased appetite [Recovering/Resolving]
  - Nausea [Recovering/Resolving]
  - Vomiting [Recovering/Resolving]
  - Hypophagia [Recovering/Resolving]

NARRATIVE: CASE EVENT DATE: 20250401
